FAERS Safety Report 14254472 (Version 4)
Quarter: 2018Q2

REPORT INFORMATION
  Report Type: Spontaneous
  Country: US (occurrence: US)
  Receive Date: 20171206
  Receipt Date: 20180430
  Transmission Date: 20180711
  Serious: No
  Sender: FDA-Public Use
  Company Number: US-PFIZER INC-2017517013

PATIENT
  Age: 33 Year
  Sex: Male
  Weight: 82 kg

DRUGS (6)
  1. SUTENT [Suspect]
     Active Substance: SUNITINIB MALATE
     Dosage: 37.5 MG, CYCLIC, (ONCE A DAY FOUR WEEKS ON ONE WEEK OFF)
     Route: 048
     Dates: start: 2017
  2. SUTENT [Suspect]
     Active Substance: SUNITINIB MALATE
     Dosage: 37.5 MG, UNK
  3. DOXIL [Concomitant]
     Active Substance: DOXORUBICIN HYDROCHLORIDE
     Indication: CHEMOTHERAPY
     Dosage: UNK
     Dates: start: 201710, end: 201712
  4. VICODIN [Concomitant]
     Active Substance: ACETAMINOPHEN\HYDROCODONE BITARTRATE
     Indication: PAIN
     Dosage: 2 DF, 1X/DAY, [HYDROCODONE BITARTRATE 5MG]-[PARACETAMOL 325MG]
     Route: 048
     Dates: start: 2017, end: 2018
  5. NEURONTIN [Concomitant]
     Active Substance: GABAPENTIN
     Indication: PAIN
     Dosage: 100 MG, 3X/DAY
     Route: 048
     Dates: start: 2017, end: 2017
  6. SUTENT [Suspect]
     Active Substance: SUNITINIB MALATE
     Indication: OSTEOCHONDROMA
     Dosage: 50 MG, UNK

REACTIONS (5)
  - Product use in unapproved indication [Unknown]
  - Feeling abnormal [Unknown]
  - Pruritus [Unknown]
  - Palmar-plantar erythrodysaesthesia syndrome [Unknown]
  - Rash [Unknown]

NARRATIVE: CASE EVENT DATE: 2017
